FAERS Safety Report 5086295-2 (Version None)
Quarter: 2006Q3

REPORT INFORMATION
  Report Type: 
  Country: None (occurrence: None)
  Receive Date: 20060823
  Receipt Date: 20060818
  Transmission Date: 20061208
  Serious: Yes (Death)
  Sender: FDA-Public Use
  Company Number: US-AVENTIS-200616899US

PATIENT
  Age: 91 Year
  Sex: Female

DRUGS (1)
  1. LOVENOX [Suspect]
     Dates: start: 20060101, end: 20060101

REACTIONS (2)
  - DEATH [None]
  - LIVER FUNCTION TEST ABNORMAL [None]
